FAERS Safety Report 9122336 (Version 1)
Quarter: 2013Q1

REPORT INFORMATION
  Report Type: Spontaneous
  Country: EC (occurrence: EC)
  Receive Date: 20130114
  Receipt Date: 20130114
  Transmission Date: 20140127
  Serious: Yes (Death, Hospitalization)
  Sender: FDA-Public Use
  Company Number: PHHY2013EC002891

PATIENT
  Sex: Female

DRUGS (2)
  1. EXELON PATCH [Suspect]
     Dosage: 4.6 MG, UNK
     Route: 062
     Dates: start: 1999
  2. VALCOTE [Concomitant]

REACTIONS (1)
  - Lung disorder [Fatal]
